FAERS Safety Report 7062275-2 (Version None)
Quarter: 2010Q4

REPORT INFORMATION
  Report Type: 
  Country: None (occurrence: None)
  Receive Date: 20101026
  Receipt Date: 20101015
  Transmission Date: 20110411
  Serious: Yes (Congenital Anomaly)
  Sender: FDA-Public Use
  Company Number: GB-SANOFI-AVENTIS-2010SA063243

PATIENT

DRUGS (13)
  1. PREDNISOLONE [Suspect]
     Route: 064
     Dates: start: 20090309
  2. HYDROXYCHLOROQUINE [Suspect]
     Route: 064
     Dates: start: 20090318
  3. PARACETAMOL [Suspect]
     Route: 064
     Dates: start: 20090309, end: 20090420
  4. ALENDRONIC ACID [Suspect]
     Indication: SYSTEMIC LUPUS ERYTHEMATOSUS
     Route: 064
  5. AZATHIOPRINE [Suspect]
     Indication: SYSTEMIC LUPUS ERYTHEMATOSUS
     Route: 064
     Dates: start: 20090309
  6. CHLORHEXIDINE GLUCONATE [Suspect]
     Route: 064
     Dates: start: 20090309, end: 20090420
  7. LACTULOSE [Suspect]
     Route: 064
     Dates: start: 20090309, end: 20090420
  8. METHYLPREDNISOLONE [Suspect]
     Route: 064
  9. MUPIROCIN [Suspect]
     Route: 064
     Dates: start: 20090309, end: 20090420
  10. SENNA [Suspect]
     Route: 064
     Dates: start: 20090309, end: 20090420
  11. SIMPLE LINCTUS [Suspect]
     Route: 064
     Dates: start: 20090309, end: 20090420
  12. ASPIRIN [Concomitant]
  13. FOLIC ACID [Concomitant]

REACTIONS (3)
  - CLEFT LIP AND PALATE [None]
  - MATERNAL CONDITION AFFECTING FOETUS [None]
  - TERATOGENICITY [None]
